FAERS Safety Report 5278700-3 (Version None)
Quarter: 2007Q1

REPORT INFORMATION
  Report Type: 
  Country: None (occurrence: None)
  Receive Date: 20070321
  Receipt Date: 20070313
  Transmission Date: 20070707
  Serious: Yes (Other)
  Sender: FDA-Public Use
  Company Number: 2007SP004039

PATIENT
  Age: 54 Year
  Sex: Male
  Weight: 57 kg

DRUGS (6)
  1. CLARITIN REDITABS [Suspect]
     Indication: RHINITIS ALLERGIC
     Dosage: 10 MG; UNK; PO
     Route: 048
     Dates: start: 20070226, end: 20070302
  2. CALTAN [Concomitant]
  3. LASIX [Concomitant]
  4. ALFAROL [Concomitant]
  5. NORVASC [Concomitant]
  6. EPOGEN [Concomitant]

REACTIONS (3)
  - ARRHYTHMIA [None]
  - CHEST DISCOMFORT [None]
  - VENTRICULAR EXTRASYSTOLES [None]
